FAERS Safety Report 9410820 (Version 1)
Quarter: 2013Q3

REPORT INFORMATION
  Report Type: Spontaneous
  Country: US (occurrence: US)
  Receive Date: 20130719
  Receipt Date: 20130719
  Transmission Date: 20140515
  Serious: Yes (Other)
  Sender: FDA-Public Use
  Company Number: US-PFIZER INC-2013211475

PATIENT
  Age: 64 Year
  Sex: Male
  Weight: 77.1 kg

DRUGS (5)
  1. ATORVASTATIN CALCIUM [Suspect]
     Indication: BLOOD CHOLESTEROL INCREASED
     Dosage: 10 MG, 1X/DAY
  2. LYRICA [Suspect]
     Indication: SPINAL COLUMN STENOSIS
     Dosage: UNK
  3. LYRICA [Suspect]
     Dosage: 200 MG, 3X/DAY
     Dates: start: 2013
  4. COUMADIN [Concomitant]
     Indication: CEREBRAL THROMBOSIS
     Dosage: 5 MG, 1X/DAY
  5. VITAMIN D [Concomitant]
     Dosage: UNK

REACTIONS (8)
  - Gait disturbance [Unknown]
  - Muscle spasms [Unknown]
  - Off label use [Unknown]
  - Somnolence [Not Recovered/Not Resolved]
  - Tremor [Not Recovered/Not Resolved]
  - Head discomfort [Not Recovered/Not Resolved]
  - Dizziness [Not Recovered/Not Resolved]
  - Disturbance in attention [Not Recovered/Not Resolved]
